FAERS Safety Report 9343575 (Version 1)
Quarter: 2013Q2

REPORT INFORMATION
  Report Type: Spontaneous
  Country: US (occurrence: US)
  Receive Date: 20130612
  Receipt Date: 20130612
  Transmission Date: 20140414
  Serious: No
  Sender: FDA-Public Use
  Company Number: US-BIOGENIDEC-2013BI052769

PATIENT
  Age: 63 Year
  Sex: Female

DRUGS (10)
  1. TYSABRI [Suspect]
     Indication: MULTIPLE SCLEROSIS
     Route: 042
  2. COPAXONE [Concomitant]
  3. SYSTOLIC [Concomitant]
  4. TIZANIDINE [Concomitant]
  5. GEMFIBROZIL [Concomitant]
  6. PRAVASTATIN [Concomitant]
  7. CHLORTHALIDONE [Concomitant]
  8. MELOXICAM [Concomitant]
  9. GABAPENTIN [Concomitant]
  10. AMITRIPTYLINE [Concomitant]

REACTIONS (2)
  - Asthenia [Unknown]
  - Multiple sclerosis [Unknown]
